FAERS Safety Report 24983352 (Version 1)
Quarter: 2025Q1

REPORT INFORMATION
  Report Type: Spontaneous
  Country: GB (occurrence: GB)
  Receive Date: 20250219
  Receipt Date: 20250219
  Transmission Date: 20250408
  Serious: Yes (Other)
  Sender: TEVA
  Company Number: None

PATIENT
  Age: 85 Year
  Sex: Male

DRUGS (2)
  1. ALLOPURINOL [Suspect]
     Active Substance: ALLOPURINOL
     Indication: Adverse drug reaction
     Route: 065
     Dates: start: 20250126, end: 20250210
  2. COLCHICINE [Concomitant]
     Active Substance: COLCHICINE
     Indication: Adverse drug reaction
     Dates: start: 20250126, end: 20250210

REACTIONS (1)
  - Change of bowel habit [Not Recovered/Not Resolved]

NARRATIVE: CASE EVENT DATE: 20250126
